FAERS Safety Report 23933057 (Version 3)
Quarter: 2025Q1

REPORT INFORMATION
  Report Type: Report from Study
  Country: FR (occurrence: FR)
  Receive Date: 20240603
  Receipt Date: 20250113
  Transmission Date: 20250408
  Serious: Yes (Hospitalization, Other)
  Sender: SANDOZ
  Company Number: FR-SANDOZ-SDZ2024FR053643

PATIENT
  Age: 32 Year
  Sex: Female
  Weight: 83 kg

DRUGS (1)
  1. ADALIMUMAB [Suspect]
     Active Substance: ADALIMUMAB
     Indication: Colitis ulcerative
     Route: 058
     Dates: start: 20240103

REACTIONS (5)
  - Adrenal insufficiency [Recovering/Resolving]
  - Tooth infection [Recovering/Resolving]
  - Skin plaque [Not Recovered/Not Resolved]
  - Dermatitis psoriasiform [Not Recovered/Not Resolved]
  - Eczema [Not Recovered/Not Resolved]

NARRATIVE: CASE EVENT DATE: 20240301
